FAERS Safety Report 14069950 (Version 1)
Quarter: 2017Q4

REPORT INFORMATION
  Report Type: Spontaneous
  Country: US (occurrence: US)
  Receive Date: 20171010
  Receipt Date: 20171010
  Transmission Date: 20180321
  Serious: No
  Sender: FDA-Public Use
  Company Number: US-ALLERGAN-1728510US

PATIENT
  Age: 89 Year
  Sex: Female

DRUGS (1)
  1. NAMZARIC [Suspect]
     Active Substance: DONEPEZIL HYDROCHLORIDE\MEMANTINE HYDROCHLORIDE
     Indication: DEMENTIA ALZHEIMER^S TYPE
     Dosage: 7 MG, QD
     Route: 048
     Dates: start: 20170703, end: 20170704

REACTIONS (2)
  - Expired product administered [Unknown]
  - Vomiting [Unknown]

NARRATIVE: CASE EVENT DATE: 20170703
